FAERS Safety Report 6188659-2 (Version None)
Quarter: 2009Q2

REPORT INFORMATION
  Report Type: 
  Country: None (occurrence: None)
  Receive Date: 20090513
  Receipt Date: 20090505
  Transmission Date: 20091009
  Serious: Yes (Hospitalization, Other)
  Sender: FDA-Public Use
  Company Number: US-AVENTIS-200817519US

PATIENT
  Sex: Female
  Weight: 109.54 kg

DRUGS (9)
  1. KETEK [Suspect]
     Indication: UPPER RESPIRATORY TRACT INFECTION
     Dosage: DOSE: UNK
     Route: 048
     Dates: start: 20050101
  2. KETEK [Suspect]
     Dosage: DOSE: UNK
     Route: 048
     Dates: start: 20050101
  3. ATUSS DM [Suspect]
     Dosage: DOSE: UNK
     Dates: start: 20050101
  4. PHENERGAN GEL [Suspect]
     Dosage: DOSE: UNK
     Dates: start: 20050101
  5. MYLANTA                            /00036701/ [Suspect]
     Dosage: DOSE: UNK
     Dates: start: 20050101
  6. TYLENOL [Suspect]
     Dosage: DOSE: UNK
     Dates: start: 20050101
  7. MOTRIN [Suspect]
     Dosage: DOSE: UNK
  8. DOXYCYCLINE [Concomitant]
     Dosage: DOSE: UNK
  9. ANTIBIOTICS [Concomitant]
     Dosage: DOSE: UNK

REACTIONS (16)
  - ABDOMINAL DISCOMFORT [None]
  - ABDOMINAL DISTENSION [None]
  - ABDOMINAL PAIN [None]
  - ALANINE AMINOTRANSFERASE INCREASED [None]
  - ASPARTATE AMINOTRANSFERASE INCREASED [None]
  - CHANGE OF BOWEL HABIT [None]
  - CHOLECYSTITIS [None]
  - CHOLELITHIASIS [None]
  - DRUG INEFFECTIVE [None]
  - FATIGUE [None]
  - HEPATIC STEATOSIS [None]
  - MALAISE [None]
  - NAUSEA [None]
  - PORTAL TRIADITIS [None]
  - PYREXIA [None]
  - RASH PRURITIC [None]
